FAERS Safety Report 5541917-4 (Version None)
Quarter: 2007Q4

REPORT INFORMATION
  Report Type: 
  Country: None (occurrence: None)
  Receive Date: 20071210
  Receipt Date: 20071129
  Transmission Date: 20080405
  Serious: Yes (Hospitalization)
  Sender: FDA-Public Use
  Company Number: GB-ROCHE-534308

PATIENT
  Age: 24 Year
  Sex: Female
  Weight: 92 kg

DRUGS (2)
  1. ORLISTAT [Suspect]
     Indication: OBESITY
     Route: 048
     Dates: start: 20071031, end: 20071121
  2. OMEPRAZOLE [Concomitant]
     Route: 048
     Dates: start: 20050101

REACTIONS (1)
  - OESOPHAGEAL OEDEMA [None]
